FAERS Safety Report 16995529 (Version 6)
Quarter: 2020Q1

REPORT INFORMATION
  Report Type: Report from Study
  Country: BE (occurrence: BE)
  Receive Date: 20191105
  Receipt Date: 20200312
  Transmission Date: 20200409
  Serious: Yes (Death, Hospitalization, Disabling)
  Sender: FDA-Public Use
  Company Number: BE-ABBVIE-19P-013-2991626-00

PATIENT
  Age: 78 Year
  Sex: Female
  Weight: 50 kg

DRUGS (21)
  1. REMINYL [Concomitant]
     Active Substance: GALANTAMINE
     Indication: COGNITIVE DISORDER
     Route: 048
     Dates: start: 2015
  2. PROLOPA [Concomitant]
     Active Substance: BENSERAZIDE\LEVODOPA
     Indication: PARKINSON^S DISEASE
     Route: 048
     Dates: start: 20160303
  3. TRAZODONE [Concomitant]
     Active Substance: TRAZODONE HYDROCHLORIDE
     Indication: INSOMNIA
     Route: 048
  4. MOVICOL [Concomitant]
     Active Substance: POLYETHYLENE GLYCOL 3350\POTASSIUM CHLORIDE\SODIUM BICARBONATE\SODIUM CHLORIDE
     Indication: CONSTIPATION
     Route: 048
     Dates: start: 2017
  5. DUODOPA [Suspect]
     Active Substance: CARBIDOPA\LEVODOPA
     Indication: PARKINSON^S DISEASE
     Dosage: TITRATION: DOSING AT END OF TITRATION: MD: 12 ML, CD: 2.5 ML/H, ED: 2 ML, 3X/D, 16 HR
     Route: 050
     Dates: start: 20170426, end: 20170428
  6. LOSEC [Concomitant]
     Active Substance: OMEPRAZOLE
     Route: 048
     Dates: start: 20190112
  7. ALPRAZOLAM. [Concomitant]
     Active Substance: ALPRAZOLAM
     Dosage: ROUTE: ENTERAL
     Dates: start: 20190122
  8. L-THYROXINE [Concomitant]
     Active Substance: LEVOTHYROXINE
     Indication: HYPOTHYROIDISM
     Route: 048
     Dates: start: 201301
  9. RIVOTRIL [Concomitant]
     Active Substance: CLONAZEPAM
     Indication: PANIC REACTION
     Route: 048
     Dates: start: 2016
  10. RIVOTRIL [Concomitant]
     Active Substance: CLONAZEPAM
     Indication: INSOMNIA
  11. FIBION [Concomitant]
     Indication: CONSTIPATION
     Dosage: DOSE: 1 SPOON IN LIQUID
     Route: 048
     Dates: start: 20180810
  12. NUTRISON PACK MULTIFIBRE [Concomitant]
     Indication: OVERWEIGHT
     Dosage: ROUTE: ENTERAL
     Dates: start: 20190207
  13. ALPRAZOLAM. [Concomitant]
     Active Substance: ALPRAZOLAM
     Indication: ANXIETY
     Route: 048
     Dates: start: 20161027, end: 20190121
  14. DOMPERIDON [Concomitant]
     Active Substance: DOMPERIDONE
     Route: 048
     Dates: start: 20190130
  15. LOSEC [Concomitant]
     Active Substance: OMEPRAZOLE
     Indication: GASTROOESOPHAGEAL REFLUX DISEASE
     Route: 048
     Dates: start: 20181212, end: 20190111
  16. HYLO COMOD [Concomitant]
     Active Substance: HYALURONATE SODIUM
     Route: 047
     Dates: start: 20190708
  17. WATER. [Concomitant]
     Active Substance: WATER
     Indication: DEHYDRATION
     Dosage: ROUTE: ENTERAL
     Dates: start: 20190707
  18. DOMPERIDON [Concomitant]
     Active Substance: DOMPERIDONE
     Indication: PROPHYLAXIS OF NAUSEA AND VOMITING
     Route: 048
     Dates: start: 20171120, end: 20190128
  19. HYLO COMOD [Concomitant]
     Active Substance: HYALURONATE SODIUM
     Indication: EYE IRRITATION
     Route: 047
     Dates: start: 20190707, end: 20190707
  20. DUODOPA [Suspect]
     Active Substance: CARBIDOPA\LEVODOPA
     Route: 050
     Dates: start: 20171120
  21. DOMPERIDON [Concomitant]
     Active Substance: DOMPERIDONE
     Route: 048
     Dates: start: 20190129, end: 20190129

REACTIONS (4)
  - Sepsis [Fatal]
  - Large intestinal obstruction [Fatal]
  - Hip fracture [Recovered/Resolved]
  - Volvulus [Fatal]

NARRATIVE: CASE EVENT DATE: 20191012
